FAERS Safety Report 10036344 (Version 2)
Quarter: 2014Q1

REPORT INFORMATION
  Report Type: Spontaneous
  Country: US (occurrence: US)
  Receive Date: 20140325
  Receipt Date: 20140327
  Transmission Date: 20141002
  Serious: Yes (Death, Hospitalization)
  Sender: FDA-Public Use
  Company Number: PHHY2014US031997

PATIENT
  Age: 40 Year
  Sex: Female

DRUGS (1)
  1. LANSOPRAZOLE [Suspect]
     Dosage: UNK

REACTIONS (16)
  - Drug reaction with eosinophilia and systemic symptoms [Fatal]
  - Multi-organ failure [Fatal]
  - Pruritus [Fatal]
  - Rash erythematous [Fatal]
  - Rash maculo-papular [Fatal]
  - Palmar erythema [Fatal]
  - White blood cell count increased [Fatal]
  - Eosinophil count increased [Fatal]
  - Renal failure acute [Unknown]
  - Hyperbilirubinaemia [Unknown]
  - Acute respiratory failure [Unknown]
  - Respiratory disorder [Unknown]
  - Hepatic steatosis [Unknown]
  - Hypotension [Unknown]
  - Bandaemia [Unknown]
  - Aspergillus infection [Unknown]
